FAERS Safety Report 9118145 (Version 1)
Quarter: 2013Q1

REPORT INFORMATION
  Report Type: Report from Study
  Country: US (occurrence: US)
  Receive Date: 20130129
  Receipt Date: 20130129
  Transmission Date: 20140127
  Serious: No
  Sender: FDA-Public Use
  Company Number: US-ABBOTT-12P-163-0939413-00

PATIENT
  Age: 67 Year
  Sex: Female

DRUGS (11)
  1. HUMIRA 40 MG/0.8 ML PEN [Suspect]
     Indication: CROHN^S DISEASE
     Route: 058
     Dates: start: 20120503, end: 20120503
  2. HUMIRA 40 MG/0.8 ML PEN [Suspect]
     Route: 058
     Dates: start: 20120517, end: 20120517
  3. HUMIRA 40 MG/0.8 ML PEN [Suspect]
     Route: 058
  4. CENTRUM SILVER [Concomitant]
     Indication: PRODUCT USED FOR UNKNOWN INDICATION
     Dosage: 1 TABLET DAILY
  5. VITAMIN D [Concomitant]
     Indication: PRODUCT USED FOR UNKNOWN INDICATION
     Dosage: 2 TABLETS DAILY
  6. FOLIC ACID [Concomitant]
     Indication: PRODUCT USED FOR UNKNOWN INDICATION
     Dosage: 1 TABLET DAILY
  7. FLEX OIL [Concomitant]
     Indication: ANTICOAGULANT THERAPY
     Dosage: 2 TABLET DAILY
  8. GARLIC [Concomitant]
     Indication: PRODUCT USED FOR UNKNOWN INDICATION
     Dosage: 1 TABLET DAILY
  9. AZATHIOPRINE [Concomitant]
     Indication: CROHN^S DISEASE
     Dosage: 1 TABLET DAILY
  10. OMEPRAZOLE [Concomitant]
     Indication: PRODUCT USED FOR UNKNOWN INDICATION
     Dosage: 1 TABLET DAILY
  11. TRAMADOL [Concomitant]
     Indication: PAIN
     Dosage: 1 TABLET DAILY AS NEEDED

REACTIONS (8)
  - Fatigue [Not Recovered/Not Resolved]
  - Contusion [Recovered/Resolved]
  - Sluggishness [Recovered/Resolved]
  - Paraesthesia [Not Recovered/Not Resolved]
  - Abdominal pain upper [Unknown]
  - Cystitis [Unknown]
  - Injection site swelling [Not Recovered/Not Resolved]
  - Feeling abnormal [Not Recovered/Not Resolved]
